FAERS Safety Report 8525899-9 (Version None)
Quarter: 2012Q3

REPORT INFORMATION
  Report Type: 
  Country: None (occurrence: None)
  Receive Date: 20120720
  Receipt Date: 20120710
  Transmission Date: 20120928
  Serious: Yes (Life-Threatening)
  Sender: FDA-Public Use
  Company Number: HR-BAXTER-2012BAX010854

PATIENT
  Age: 46 Year
  Sex: Female
  Weight: 60 kg

DRUGS (5)
  1. EPIRUBICIN [Suspect]
     Dates: start: 20120517, end: 20120518
  2. IFOSFAMIDE [Suspect]
     Route: 042
     Dates: start: 20120517, end: 20120518
  3. MESNA [Suspect]
     Route: 042
     Dates: start: 20120517, end: 20120518
  4. EPIRUBICIN [Suspect]
     Dates: start: 20120517, end: 20120518
  5. EPIRUBICIN [Suspect]
     Route: 042
     Dates: start: 20120517, end: 20120518

REACTIONS (3)
  - THROMBOCYTOPENIA [None]
  - NEUTROPENIA [None]
  - LEUKOPENIA [None]
